FAERS Safety Report 8805201 (Version 2)
Quarter: 2012Q4

REPORT INFORMATION
  Report Type: Report from Study
  Country: DE (occurrence: DE)
  Receive Date: 20120924
  Receipt Date: 20121023
  Transmission Date: 20130627
  Serious: Yes (Life-Threatening, Hospitalization)
  Sender: FDA-Public Use
  Company Number: DE-ROCHE-1122946

PATIENT
  Age: 66 Year
  Sex: Female
  Weight: 59 kg

DRUGS (3)
  1. BEVACIZUMAB [Suspect]
     Indication: OVARIAN CANCER
     Dosage: was not given on cycle 1
     Route: 042
  2. PACLITAXEL [Suspect]
     Indication: OVARIAN CANCER
     Dosage: last dose prior to SAE was taken on 30/Aug/2012
     Route: 042
     Dates: start: 20120830
  3. CARBOPLATIN [Suspect]
     Indication: OVARIAN CANCER
     Dosage: last dose prior to SAE was taken on 30/Aug/2012
     Route: 042
     Dates: start: 20120830

REACTIONS (2)
  - Epilepsy [Recovered/Resolved]
  - Sepsis [Not Recovered/Not Resolved]
